FAERS Safety Report 8297014-0 (Version None)
Quarter: 2012Q2

REPORT INFORMATION
  Report Type: 
  Country: None (occurrence: None)
  Receive Date: 20120419
  Receipt Date: 20120412
  Transmission Date: 20120825
  Serious: No
  Sender: FDA-Public Use
  Company Number: US-BIOGENIDEC-2012BI013088

PATIENT
  Age: 44 Year
  Sex: Female

DRUGS (3)
  1. AVONEX [Suspect]
     Indication: MULTIPLE SCLEROSIS
     Route: 030
     Dates: start: 20020602
  2. CARBAMAZEPINE [Concomitant]
     Indication: TRIGEMINAL NEURALGIA
     Dates: start: 20070101, end: 20100101
  3. AMITRIPTYLINE HCL [Concomitant]
     Indication: TRIGEMINAL NEURALGIA
     Dates: start: 20030101, end: 20080101

REACTIONS (1)
  - TRIGEMINAL NEURALGIA [None]
